FAERS Safety Report 21611602 (Version 1)
Quarter: 2022Q4

REPORT INFORMATION
  Report Type: Spontaneous
  Country: US (occurrence: US)
  Receive Date: 20221117
  Receipt Date: 20221117
  Transmission Date: 20230113
  Serious: Yes (Hospitalization, Other)
  Sender: FDA-Public Use
  Company Number: US-BRISTOL-MYERS SQUIBB COMPANY-2022-134483

PATIENT
  Age: 48 Year
  Sex: Male
  Weight: 84.4 kg

DRUGS (1)
  1. BELATACEPT [Suspect]
     Active Substance: BELATACEPT
     Indication: Renal transplant
     Route: 041

REACTIONS (5)
  - Pollakiuria [Unknown]
  - Pyrexia [Unknown]
  - Nausea [Unknown]
  - Diarrhoea [Unknown]
  - Urinary tract stoma complication [Unknown]

NARRATIVE: CASE EVENT DATE: 20221009
